FAERS Safety Report 5564823-8 (Version None)
Quarter: 2007Q4

REPORT INFORMATION
  Report Type: 
  Country: None (occurrence: None)
  Receive Date: 20071218
  Receipt Date: 20071213
  Transmission Date: 20080405
  Serious: Yes (Other)
  Sender: FDA-Public Use
  Company Number: B0493857A

PATIENT
  Age: 64 Year
  Sex: Female

DRUGS (11)
  1. ACETAMINOPHEN [Suspect]
     Dosage: 24G PER DAY
     Route: 065
  2. DIAZEPAM [Suspect]
     Dosage: 50U PER DAY
     Route: 065
  3. AMITRIPTLINE HCL [Suspect]
     Dosage: 50MG PER DAY
  4. TRAMADOL HCL [Concomitant]
  5. DICLOFENAC [Concomitant]
  6. EVISTA [Concomitant]
  7. MICARDIS [Concomitant]
  8. ATORVASTATIN [Concomitant]
  9. CALCIUM CARBONATE [Concomitant]
  10. LEVOTHYROXINE SODIUM [Concomitant]
  11. OMEPRAZOLE [Concomitant]

REACTIONS (7)
  - AGITATION [None]
  - DEPRESSED LEVEL OF CONSCIOUSNESS [None]
  - DYSARTHRIA [None]
  - HYPOTENSION [None]
  - OVERDOSE [None]
  - PAIN IN EXTREMITY [None]
  - SOMNOLENCE [None]
